FAERS Safety Report 5388127-1 (Version None)
Quarter: 2007Q3

REPORT INFORMATION
  Report Type: 
  Country: None (occurrence: None)
  Receive Date: 20070716
  Receipt Date: 20061206
  Transmission Date: 20080115
  Serious: No
  Sender: FDA-Public Use
  Company Number: A0630366A

PATIENT
  Age: 75 Year
  Sex: Female

DRUGS (1)
  1. NICORETTE [Suspect]

REACTIONS (6)
  - INTENTIONAL DRUG MISUSE [None]
  - LOOSE TOOTH [None]
  - RASH ERYTHEMATOUS [None]
  - SKIN BURNING SENSATION [None]
  - SKIN INFLAMMATION [None]
  - URTICARIA [None]
